FAERS Safety Report 16223691 (Version 4)
Quarter: 2019Q3

REPORT INFORMATION
  Report Type: Report from Study
  Country: US (occurrence: US)
  Receive Date: 20190422
  Receipt Date: 20190705
  Transmission Date: 20191004
  Serious: Yes (Hospitalization)
  Sender: FDA-Public Use
  Company Number: PHEH2019US017053

PATIENT
  Age: 75 Year
  Sex: Female

DRUGS (1)
  1. ENTRESTO [Suspect]
     Active Substance: SACUBITRIL\VALSARTAN
     Indication: CARDIAC FAILURE
     Dosage: 1 DF (24 MG OF SACUBITRIL AND 26 MG OF VALSARTAN), BID
     Route: 048
     Dates: start: 20190523

REACTIONS (14)
  - Blood potassium increased [Unknown]
  - Ear swelling [Unknown]
  - Swelling face [Unknown]
  - Bite [Unknown]
  - Dizziness [Unknown]
  - Skin disorder [Unknown]
  - Fatigue [Unknown]
  - Eye swelling [Unknown]
  - Rash [Unknown]
  - Weight increased [Unknown]
  - Tenderness [Unknown]
  - Wrong technique in product usage process [Unknown]
  - Swelling [Unknown]
  - Blood pressure fluctuation [Unknown]

NARRATIVE: CASE EVENT DATE: 20190523
